FAERS Safety Report 9701546 (Version 2)
Quarter: 2013Q4

REPORT INFORMATION
  Report Type: Report from Study
  Country: US (occurrence: US)
  Receive Date: 20131121
  Receipt Date: 20131217
  Transmission Date: 20140711
  Serious: Yes (Other)
  Sender: FDA-Public Use
  Company Number: US-NAPPMUNDI-USA-2013-0108548

PATIENT
  Sex: Female

DRUGS (2)
  1. OXY CR TAB [Suspect]
     Indication: BACK PAIN
     Dosage: 30 MG, BID
     Dates: start: 20130823, end: 20130904
  2. OXY CR TAB [Suspect]
     Dosage: UNK
     Dates: start: 20030904

REACTIONS (1)
  - Myocardial infarction [None]
